FAERS Safety Report 22161219 (Version 1)
Quarter: 2023Q1

REPORT INFORMATION
  Report Type: Spontaneous
  Country: DE (occurrence: DE)
  Receive Date: 20230331
  Receipt Date: 20230331
  Transmission Date: 20230418
  Serious: Yes (Other)
  Sender: FDA-Public Use
  Company Number: DE-002147023-NVSC2023DE074416

PATIENT
  Sex: Male
  Weight: 75 kg

DRUGS (7)
  1. LEQVIO [Suspect]
     Active Substance: INCLISIRAN SODIUM
     Indication: Hyperlipidaemia
     Dosage: UNK, 1-0-0-0-0
     Route: 058
     Dates: start: 202207
  2. LEQVIO [Suspect]
     Active Substance: INCLISIRAN SODIUM
     Indication: Lipoprotein (a) increased
  3. ASPIRIN [Concomitant]
     Active Substance: ASPIRIN
     Indication: Platelet aggregation inhibition
     Dosage: UNK QD, 1-0-0-0-0
     Route: 065
     Dates: start: 202202
  4. CLOPIDOGREL BISULFATE [Concomitant]
     Active Substance: CLOPIDOGREL BISULFATE
     Indication: Platelet aggregation inhibition
     Dosage: UNK, QD (1-0-0-0-0)
     Route: 065
     Dates: start: 202202
  5. METAMIZOLE SODIUM [Concomitant]
     Active Substance: METAMIZOLE SODIUM
     Indication: Product used for unknown indication
     Dosage: UNK, 1-0-0-0-0
     Route: 065
  6. CORTISONE [Concomitant]
     Active Substance: CORTISONE
     Indication: Product used for unknown indication
     Dosage: UNK
     Route: 065
  7. PANTOPRAZOLE [Concomitant]
     Active Substance: PANTOPRAZOLE
     Indication: Product used for unknown indication
     Dosage: UNK, QD (1-0-0)
     Route: 065

REACTIONS (11)
  - Erythema multiforme [Unknown]
  - Hepatitis [Unknown]
  - Joint swelling [Not Recovered/Not Resolved]
  - Fatigue [Recovered/Resolved]
  - Blood creatine phosphokinase increased [Unknown]
  - Intervertebral disc protrusion [Unknown]
  - Skin discolouration [Recovering/Resolving]
  - Dizziness [Recovered/Resolved]
  - Peripheral swelling [Not Recovered/Not Resolved]
  - Blood pressure increased [Unknown]
  - Muscle spasms [Unknown]

NARRATIVE: CASE EVENT DATE: 20220101
